FAERS Safety Report 24049405 (Version 1)
Quarter: 2024Q3

REPORT INFORMATION
  Report Type: Spontaneous
  Country: GB (occurrence: GB)
  Receive Date: 20240704
  Receipt Date: 20240704
  Transmission Date: 20241017
  Serious: No
  Sender: ALKEM
  Company Number: None

PATIENT
  Age: 58 Year
  Sex: Female
  Weight: 53 kg

DRUGS (6)
  1. IBUPROFEN [Suspect]
     Active Substance: IBUPROFEN
     Indication: Product used for unknown indication
     Dosage: 10%, GEL
     Route: 061
     Dates: start: 20240402
  2. AMOXICILLIN [Concomitant]
     Active Substance: AMOXICILLIN
     Indication: Product used for unknown indication
     Dosage: 3 DOSAGE FORM, QD
     Route: 048
     Dates: start: 20240402
  3. CARBOMER [Concomitant]
     Active Substance: CARBOMER
     Indication: Product used for unknown indication
     Dosage: UNK, PRN, APPLY TO BOTH EYES
     Route: 065
     Dates: start: 20230627
  4. Hylo-forte (sodium hyaluronate) [Concomitant]
     Indication: Product used for unknown indication
     Dosage: 6 DOSAGE FORM, QD, (IN BOTH EYES)
     Route: 065
     Dates: start: 20220316
  5. NAPROXEN [Concomitant]
     Active Substance: NAPROXEN
     Indication: Product used for unknown indication
     Dosage: 2 DOSAGE FORM, QD, (TAKE ONE UP TO TWICE A DAY)
     Route: 048
     Dates: start: 20240402
  6. OMEPRAZOLE [Concomitant]
     Active Substance: OMEPRAZOLE
     Indication: Product used for unknown indication
     Dosage: 1 DOSAGE FORM, QD, (WHILST TAKING NAPROXEN)
     Route: 048
     Dates: start: 20240402

REACTIONS (1)
  - Rash [Recovered/Resolved]

NARRATIVE: CASE EVENT DATE: 20240402
